FAERS Safety Report 19260395 (Version 1)
Quarter: 2021Q2

REPORT INFORMATION
  Report Type: Spontaneous
  Country: NL (occurrence: NL)
  Receive Date: 20210515
  Receipt Date: 20210515
  Transmission Date: 20210717
  Serious: Yes (Other)
  Sender: FDA-Public Use
  Company Number: NL-TEVA-2021-NL-1909428

PATIENT
  Sex: Female

DRUGS (3)
  1. LEVOTHYROXINENATRIUM TEVA 75 MICROGRAM, TABLETTEN [Suspect]
     Active Substance: LEVOTHYROXINE SODIUM
     Dosage: 50 MICROGRAM DAILY;
     Route: 065
     Dates: start: 20210317, end: 2021
  2. LEVOTHYROXINENATRIUM TEVA 75 MICROGRAM, TABLETTEN [Suspect]
     Active Substance: LEVOTHYROXINE SODIUM
     Dosage: 25 MICROGRAM DAILY;
     Route: 065
     Dates: start: 2019, end: 20210316
  3. LEVOTHYROXINENATRIUM TEVA 75 MICROGRAM, TABLETTEN [Suspect]
     Active Substance: LEVOTHYROXINE SODIUM
     Dosage: 50 MICROGRAM DAILY;
     Route: 065
     Dates: start: 2021

REACTIONS (5)
  - Hallucination [Recovered/Resolved]
  - Presyncope [Recovered/Resolved]
  - Chills [Recovered/Resolved]
  - Hypothyroidism [Unknown]
  - Dizziness [Recovered/Resolved]

NARRATIVE: CASE EVENT DATE: 2021
